FAERS Safety Report 8156575-2 (Version None)
Quarter: 2012Q1

REPORT INFORMATION
  Report Type: 
  Country: None (occurrence: None)
  Receive Date: 20120216
  Receipt Date: 20111122
  Transmission Date: 20120608
  Serious: Yes (Death, Hospitalization, Other)
  Sender: FDA-Public Use
  Company Number: 2010000444

PATIENT
  Age: 53 Year
  Sex: Female
  Weight: 84 kg

DRUGS (16)
  1. MINOCYCLINE HCL [Concomitant]
  2. LEVAQUIN [Concomitant]
  3. ERLOTINIB HYDROCHLORIDE [Suspect]
     Indication: NON-SMALL CELL LUNG CANCER
     Dosage: 50 MG, UID/QD, ORAL, 50 MG, ORAL
     Route: 042
     Dates: start: 20110418, end: 20110425
  4. ERLOTINIB HYDROCHLORIDE [Suspect]
     Indication: NON-SMALL CELL LUNG CANCER
     Dosage: 50 MG, UID/QD, ORAL, 50 MG, ORAL
     Route: 042
     Dates: start: 20060723
  5. AVASTATIN (BEVACIZUMAB) INFUSION [Suspect]
     Indication: NON-SMALL CELL LUNG CANCER
     Dosage: 15 MG/KG 1 IN 21DAYS, Q3W, IV NOS,15 MG/KG, Q3W, 15 MG/KG, Q3W
     Dates: start: 20080723, end: 20091224
  6. AVASTATIN (BEVACIZUMAB) INFUSION [Suspect]
     Indication: NON-SMALL CELL LUNG CANCER
     Dosage: 15 MG/KG 1 IN 21DAYS, Q3W, IV NOS,15 MG/KG, Q3W, 15 MG/KG, Q3W
     Dates: start: 20090116, end: 20110418
  7. ZOFRAN [Concomitant]
  8. LORTAB [Concomitant]
  9. AVASTATIN (BEVACIZUMAB) INFUSION [Suspect]
  10. FENTANYL [Concomitant]
  11. LOVENOX [Concomitant]
  12. PHENERGAN HCL [Concomitant]
  13. LISINOPRIL [Concomitant]
  14. 4 LIFE TRANSFER FACTOR (TRANSFER FACTOR) [Concomitant]
  15. THERA PLUS VITAMINS (MULTIVITAMINS WITH MINERALS) [Concomitant]
  16. CIPRO [Concomitant]

REACTIONS (32)
  - ASTHENIA [None]
  - FEELING COLD [None]
  - CANDIDIASIS [None]
  - HYPOTENSION [None]
  - LUNG INFECTION [None]
  - FALL [None]
  - TACHYCARDIA [None]
  - DYSPNOEA [None]
  - NEOPLASM MALIGNANT [None]
  - PANIC ATTACK [None]
  - BLOOD PRESSURE DECREASED [None]
  - VOMITING [None]
  - ASPIRATION [None]
  - RESPIRATORY FAILURE [None]
  - GASTROOESOPHAGEAL REFLUX DISEASE [None]
  - DIASTOLIC DYSFUNCTION [None]
  - CYANOSIS [None]
  - INCORRECT DOSE ADMINISTERED [None]
  - PERICARDIAL EFFUSION [None]
  - ANGINA PECTORIS [None]
  - RENAL FAILURE ACUTE [None]
  - TRICUSPID VALVE INCOMPETENCE [None]
  - FUNGAL SEPSIS [None]
  - BRONCHITIS VIRAL [None]
  - LUNG NEOPLASM MALIGNANT [None]
  - LEFT VENTRICULAR DYSFUNCTION [None]
  - DEHYDRATION [None]
  - DYSPNOEA EXERTIONAL [None]
  - PULMONARY HYPERTENSION [None]
  - RASH [None]
  - SYNCOPE [None]
  - CIRCULATORY COLLAPSE [None]
